FAERS Safety Report 15196858 (Version 1)
Quarter: 2018Q3

REPORT INFORMATION
  Report Type: Spontaneous
  Country: FR (occurrence: FR)
  Receive Date: 20180725
  Receipt Date: 20180725
  Transmission Date: 20181010
  Serious: Yes (Hospitalization)
  Sender: FDA-Public Use
  Company Number: FR-LPDUSPRD-20181314

PATIENT
  Age: 82 Year
  Sex: Male

DRUGS (1)
  1. VENOFER [Suspect]
     Active Substance: IRON SUCROSE
     Dosage: 200 MG, 1 IN 1 D
     Route: 042
     Dates: start: 20180603, end: 20180603

REACTIONS (1)
  - Injection site inflammation [Unknown]

NARRATIVE: CASE EVENT DATE: 20180606
